FAERS Safety Report 5117153-2 (Version None)
Quarter: 2006Q3

REPORT INFORMATION
  Report Type: 
  Country: None (occurrence: None)
  Receive Date: 20060927
  Receipt Date: 20060927
  Transmission Date: 20061208
  Serious: No
  Sender: FDA-Public Use
  Company Number: None

PATIENT
  Age: 64 Year
  Sex: Male
  Weight: 61 kg

DRUGS (1)
  1. LITHIUM [Suspect]
     Indication: BIPOLAR DISORDER

REACTIONS (1)
  - RENAL FAILURE [None]
